FAERS Safety Report 5155803-5 (Version None)
Quarter: 2006Q4

REPORT INFORMATION
  Report Type: 
  Country: None (occurrence: None)
  Receive Date: 20061113
  Receipt Date: 20061106
  Transmission Date: 20070319
  Serious: Yes (Other)
  Sender: FDA-Public Use
  Company Number: 149530USA

PATIENT
  Sex: Female

DRUGS (1)
  1. COPAXONE [Suspect]
     Indication: MULTIPLE SCLEROSIS
     Dosage: (20 MG), SUBCUTANEOUS
     Route: 058

REACTIONS (3)
  - HEPATIC FIBROSIS [None]
  - LIVER DISORDER [None]
  - SCAR [None]
